FAERS Safety Report 24078866 (Version 5)
Quarter: 2024Q4

REPORT INFORMATION
  Report Type: Spontaneous
  Country: US (occurrence: US)
  Receive Date: 20240711
  Receipt Date: 20241001
  Transmission Date: 20250114
  Serious: No
  Sender: ROCHE
  Company Number: US-ROCHE-10000022531

PATIENT
  Age: 44 Year
  Sex: Female
  Weight: 53.07 kg

DRUGS (13)
  1. XOLAIR PFS [Suspect]
     Active Substance: OMALIZUMAB
     Indication: Urticaria chronic
     Dosage: IN THE ABDOMEN, 2 INCHES FROM THE BELLY BUTTON, ONE ON EACH SIDE, IN THE FAT
     Route: 058
     Dates: start: 2022
  2. XOLAIR PFS [Suspect]
     Active Substance: OMALIZUMAB
     Indication: Mastocytosis
  3. CLONAZEPAM [Suspect]
     Active Substance: CLONAZEPAM
     Indication: Restless legs syndrome
     Dosage: AT BEDTIME, 2 OF 5MG TABLETS
     Route: 048
  4. CLONAZEPAM [Suspect]
     Active Substance: CLONAZEPAM
     Indication: Sleep disorder
     Dosage: AT BEDTIME
     Route: 048
     Dates: end: 2023
  5. ADOBE [Concomitant]
     Indication: Migraine
     Route: 065
  6. SUCRALFATE [Concomitant]
     Active Substance: SUCRALFATE
     Indication: Ulcer
     Dosage: CAN BE CHEWED UP, BEFORE EVERY MEAL AND AT BEDTIME
     Route: 048
  7. LOSARTAN [Concomitant]
     Active Substance: LOSARTAN
     Indication: Hypertension
     Route: 048
  8. SINGULAIR [Concomitant]
     Active Substance: MONTELUKAST SODIUM
     Indication: Asthma
     Dosage: AT NIGHT
     Route: 048
  9. FAMOTIDINE [Concomitant]
     Active Substance: FAMOTIDINE
     Indication: Gastrooesophageal reflux disease
     Dosage: AT NIGHT
     Route: 048
     Dates: start: 2016
  10. FAMOTIDINE [Concomitant]
     Active Substance: FAMOTIDINE
     Indication: Mastocytosis
  11. SYMBICORT [Concomitant]
     Active Substance: BUDESONIDE\FORMOTEROL FUMARATE DIHYDRATE
     Indication: Asthma
     Dosage: 2 PUFFS IN THE MORNING, 2.5MCG EACH PUFF
     Route: 055
  12. AZELASTINE [Concomitant]
     Active Substance: AZELASTINE
     Indication: Hypersensitivity
     Dosage: 1 SPRAY IN EASY NOSTRIL, IN THE MORNING
     Route: 045
  13. IPRATROPIUM [Concomitant]
     Active Substance: IPRATROPIUM
     Indication: Asthma
     Dosage: 21MCG PER SPRAY, 2 SPRAYS IN EACH NOSTRIL IN THE MORNING AND AT NIGHT
     Route: 045

REACTIONS (8)
  - Depression [Recovered/Resolved]
  - Anxiety [Recovered/Resolved]
  - Sleep disorder [Recovered/Resolved]
  - Off label use [Unknown]
  - Gastrooesophageal reflux disease [Unknown]
  - Product complaint [Unknown]
  - Product complaint [Unknown]
  - Drug ineffective [Unknown]

NARRATIVE: CASE EVENT DATE: 20230101
